FAERS Safety Report 17803118 (Version 1)
Quarter: 2020Q2

REPORT INFORMATION
  Report Type: Spontaneous
  Country: GB (occurrence: GB)
  Receive Date: 20200519
  Receipt Date: 20200519
  Transmission Date: 20200714
  Serious: Yes (Other)
  Sender: FDA-Public Use
  Company Number: GB-MYLANLABS-2020M1048172

PATIENT
  Age: 16 Year
  Sex: Male
  Weight: 125 kg

DRUGS (12)
  1. METARAMINOL [Concomitant]
     Active Substance: METARAMINOL
     Dosage: UNK
  2. MEROPENEM TRIHYDRATE [Concomitant]
     Active Substance: MEROPENEM
  3. DOCUSATE SODIUM. [Concomitant]
     Active Substance: DOCUSATE SODIUM
     Dosage: UNK
  4. LEVETIRACETAM. [Suspect]
     Active Substance: LEVETIRACETAM
     Indication: TONIC CONVULSION
     Dosage: 3 GRAM, QD
     Route: 048
     Dates: start: 20200410, end: 20200421
  5. MORPHINE [Concomitant]
     Active Substance: MORPHINE
  6. SPIRONOLACTONE. [Concomitant]
     Active Substance: SPIRONOLACTONE
  7. OMEPRAZOLE. [Concomitant]
     Active Substance: OMEPRAZOLE
  8. VANCOMYCIN [Concomitant]
     Active Substance: VANCOMYCIN
  9. FUROSEMIDE. [Concomitant]
     Active Substance: FUROSEMIDE
  10. LACTULOSE. [Concomitant]
     Active Substance: LACTULOSE
  11. ENOXAPARIN SODIUM. [Concomitant]
     Active Substance: ENOXAPARIN SODIUM
  12. PROPOFOL. [Concomitant]
     Active Substance: PROPOFOL
     Dosage: UNK

REACTIONS (3)
  - Rhabdomyolysis [Unknown]
  - Chromaturia [Unknown]
  - Blood creatine phosphokinase increased [Recovering/Resolving]

NARRATIVE: CASE EVENT DATE: 20200413
